FAERS Safety Report 8896323 (Version 1)
Quarter: 2012Q4

REPORT INFORMATION
  Report Type: Spontaneous
  Country: US (occurrence: None)
  Receive Date: 20121107
  Receipt Date: 20121107
  Transmission Date: 20130627
  Serious: Yes (Other)
  Sender: FDA-Public Use
  Company Number: None

PATIENT
  Sex: Female
  Weight: 81.65 kg

DRUGS (3)
  1. VENLAFAXINE HCL [Suspect]
     Indication: POST-TRAUMATIC STRESS DISORDER
     Dates: start: 20120516
  2. VENLAFAXINE HCL [Suspect]
     Indication: POST-TRAUMATIC STRESS DISORDER
     Dates: start: 20120622
  3. VENLAFAXINE HCL [Suspect]
     Indication: POST-TRAUMATIC STRESS DISORDER
     Dates: start: 20120716

REACTIONS (2)
  - Product substitution issue [None]
  - Adverse drug reaction [None]
